FAERS Safety Report 14970885 (Version 3)
Quarter: 2018Q3

REPORT INFORMATION
  Report Type: Report from Study
  Country: None (occurrence: US)
  Receive Date: 20180604
  Receipt Date: 20180723
  Transmission Date: 20181010
  Serious: Yes (Other)
  Sender: FDA-Public Use
  Company Number: US-ABBVIE-18K-163-2373086-00

PATIENT
  Sex: Female

DRUGS (6)
  1. HUMIRA [Suspect]
     Active Substance: ADALIMUMAB
     Indication: RHEUMATOID ARTHRITIS
     Route: 058
     Dates: start: 2012
  2. METHOTREXATE. [Concomitant]
     Active Substance: METHOTREXATE
     Indication: RHEUMATOID ARTHRITIS
  3. FOLIC ACID. [Concomitant]
     Active Substance: FOLIC ACID
     Indication: LIVER DISORDER
  4. HUMIRA [Suspect]
     Active Substance: ADALIMUMAB
     Route: 058
     Dates: start: 2016, end: 20171008
  5. HUMIRA [Suspect]
     Active Substance: ADALIMUMAB
     Route: 058
     Dates: start: 20171112
  6. NAPROXEN. [Concomitant]
     Active Substance: NAPROXEN
     Indication: INFLAMMATION

REACTIONS (19)
  - Peripheral swelling [Recovering/Resolving]
  - Peripheral swelling [Recovering/Resolving]
  - Arthritis [Not Recovered/Not Resolved]
  - Arthralgia [Recovering/Resolving]
  - Impaired healing [Not Recovered/Not Resolved]
  - Hypoaesthesia [Not Recovered/Not Resolved]
  - Blood pressure abnormal [Unknown]
  - Exostosis [Not Recovered/Not Resolved]
  - Foot deformity [Not Recovered/Not Resolved]
  - Device fastener issue [Not Recovered/Not Resolved]
  - Musculoskeletal stiffness [Not Recovered/Not Resolved]
  - Pain in extremity [Not Recovered/Not Resolved]
  - Rheumatoid arthritis [Recovered/Resolved]
  - Medical device discomfort [Unknown]
  - Patient-device incompatibility [Not Recovered/Not Resolved]
  - Procedural pain [Unknown]
  - Stress [Recovering/Resolving]
  - Pain in extremity [Recovering/Resolving]
  - Foot deformity [Recovering/Resolving]

NARRATIVE: CASE EVENT DATE: 2016
